FAERS Safety Report 13200620 (Version 1)
Quarter: 2017Q1

REPORT INFORMATION
  Report Type: Spontaneous
  Country: GB (occurrence: GB)
  Receive Date: 20170208
  Receipt Date: 20170208
  Transmission Date: 20170428
  Serious: Yes (Death)
  Sender: FDA-Public Use
  Company Number: GB-MYLANLABS-2017M1007002

PATIENT

DRUGS (3)
  1. DEXIMUNE [Suspect]
     Active Substance: CYCLOSPORINE
  2. AZATHIOPRINE. [Suspect]
     Active Substance: AZATHIOPRINE
  3. PREDNISOLONE. [Suspect]
     Active Substance: PREDNISOLONE

REACTIONS (1)
  - Death [Fatal]
